FAERS Safety Report 8911138 (Version 1)
Quarter: 2012Q4

REPORT INFORMATION
  Report Type: 
  Country: US (occurrence: US)
  Receive Date: 20121116
  Receipt Date: 20121116
  Transmission Date: 20130627
  Serious: No
  Sender: FDA-Public Use
  Company Number: US-GLAXOSMITHKLINE-A0986358A

PATIENT
  Sex: Male

DRUGS (1)
  1. VOTRIENT [Suspect]
     Indication: RENAL CELL CARCINOMA
     Dosage: 200MG Per day
     Route: 048
     Dates: start: 20120601, end: 20120709

REACTIONS (5)
  - Oropharyngeal pain [Unknown]
  - Dysphagia [Unknown]
  - Decreased appetite [Unknown]
  - Oral pain [Unknown]
  - Glossodynia [Unknown]
